FAERS Safety Report 8434174-2 (Version None)
Quarter: 2012Q2

REPORT INFORMATION
  Report Type: 
  Country: None (occurrence: None)
  Receive Date: 20120613
  Receipt Date: 20120604
  Transmission Date: 20120825
  Serious: Yes (Hospitalization)
  Sender: FDA-Public Use
  Company Number: DE-ACTELION-A-CH2012-66838

PATIENT
  Sex: Female

DRUGS (3)
  1. TRACLEER [Suspect]
     Indication: PRODUCT USED FOR UNKNOWN INDICATION
     Dosage: 125 MG, UNK
     Route: 048
  2. TRACLEER [Suspect]
     Dosage: UNK
     Route: 048
  3. TRACLEER [Suspect]
     Dosage: 62.5 MG, UNK
     Route: 048

REACTIONS (1)
  - DRUG INTERACTION [None]
